FAERS Safety Report 5531552-6 (Version None)
Quarter: 2007Q4

REPORT INFORMATION
  Report Type: 
  Country: None (occurrence: None)
  Receive Date: 20071203
  Receipt Date: 20071126
  Transmission Date: 20080405
  Serious: Yes (Disabling)
  Sender: FDA-Public Use
  Company Number: PHBS2007HN19863

PATIENT
  Age: 54 Year
  Sex: Female

DRUGS (1)
  1. RECLAST [Suspect]
     Indication: OSTEOPOROSIS
     Dosage: 5 MG/DAY
     Route: 042
     Dates: start: 20071120

REACTIONS (3)
  - ARTHRALGIA [None]
  - ARTHRITIS [None]
  - PYREXIA [None]
